FAERS Safety Report 10242137 (Version 1)
Quarter: 2014Q2

REPORT INFORMATION
  Report Type: Spontaneous
  Country: US (occurrence: US)
  Receive Date: 20140617
  Receipt Date: 20140617
  Transmission Date: 20141212
  Serious: No
  Sender: FDA-Public Use
  Company Number: US-PFIZER INC-2014164717

PATIENT
  Age: 68 Year
  Sex: Female

DRUGS (2)
  1. LIPITOR [Suspect]
     Dosage: UNK
  2. COPAXONE [Suspect]
     Dosage: UNK

REACTIONS (2)
  - Myalgia [Unknown]
  - Asthenia [Unknown]
